FAERS Safety Report 19097838 (Version 1)
Quarter: 2021Q2

REPORT INFORMATION
  Report Type: Report from Study
  Country: JP (occurrence: JP)
  Receive Date: 20210406
  Receipt Date: 20210406
  Transmission Date: 20210717
  Serious: Yes (Death)
  Sender: FDA-Public Use
  Company Number: JP-ROCHE-2803772

PATIENT
  Age: 66 Year
  Sex: Female
  Weight: 49 kg

DRUGS (5)
  1. FAMOTIDINE. [Concomitant]
     Active Substance: FAMOTIDINE
     Dosage: REFLUX OESOPHAGITIS TREATMENT
     Route: 048
     Dates: start: 20140516
  2. LYRICA [Concomitant]
     Active Substance: PREGABALIN
     Dosage: NEURALGIA TREATMENT
     Route: 048
     Dates: start: 20140704, end: 20161201
  3. BAKTAR [Concomitant]
     Active Substance: SULFAMETHOXAZOLE\TRIMETHOPRIM
     Dosage: FUNGAL INFECTION PROPHYLAXIS
     Route: 048
     Dates: start: 20140502
  4. RITUXIMAB. [Suspect]
     Active Substance: RITUXIMAB
     Indication: SYSTEMIC SCLERODERMA
     Dosage: 30 WEEKS?375MG/M2 ONCE A WEEK 4 TIMES ONCE A WEEK (AS PER PROTOCOL)
     Route: 041
     Dates: start: 20160822, end: 20160905
  5. PREDONINE [Suspect]
     Active Substance: PREDNISOLONE
     Indication: SYSTEMIC SCLERODERMA
     Route: 048
     Dates: start: 20161110

REACTIONS (1)
  - Respiratory disorder [Fatal]

NARRATIVE: CASE EVENT DATE: 20161201
